FAERS Safety Report 9416128 (Version 1)
Quarter: 2013Q3

REPORT INFORMATION
  Report Type: Spontaneous
  Country: US (occurrence: US)
  Receive Date: 20130724
  Receipt Date: 20130724
  Transmission Date: 20140515
  Serious: Yes (Hospitalization)
  Sender: FDA-Public Use
  Company Number: US-ASTRAZENECA-2013SE53334

PATIENT
  Age: 47 Year
  Sex: Male
  Weight: 78.5 kg

DRUGS (19)
  1. NEXIUM [Suspect]
     Indication: GASTROOESOPHAGEAL REFLUX DISEASE
     Route: 048
     Dates: start: 2010, end: 20130623
  2. PROTONIX [Suspect]
     Route: 042
  3. MULTIVITAMIN [Concomitant]
     Indication: SUPPLEMENTATION THERAPY
     Route: 050
     Dates: start: 2012
  4. FERROUS SULFATE [Concomitant]
     Indication: ANAEMIA
     Route: 050
     Dates: start: 201301
  5. VITAMIN B12 [Concomitant]
     Indication: ANAEMIA
     Route: 050
     Dates: start: 201301
  6. ADVAIR [Concomitant]
     Indication: CHRONIC OBSTRUCTIVE PULMONARY DISEASE
     Dosage: 250/50MG BID
     Route: 055
     Dates: start: 2012
  7. COMBIVENT [Concomitant]
     Indication: CHRONIC OBSTRUCTIVE PULMONARY DISEASE
     Dosage: UNKNOWN TWO TIME A DAY
     Route: 055
     Dates: start: 2012
  8. COLACE [Concomitant]
     Indication: CONSTIPATION
     Route: 050
     Dates: start: 2011
  9. SENNACOT-S [Concomitant]
     Indication: CONSTIPATION
     Dosage: UNK QOD
     Route: 050
     Dates: start: 2011
  10. REFRESH PLUS [Concomitant]
     Dosage: 1 DROP OU BID
     Dates: start: 2011
  11. VESICARE [Concomitant]
  12. HYDRALAZINE [Concomitant]
     Indication: HYPERTENSION
     Route: 050
     Dates: start: 2003
  13. DOXAZOSIN [Concomitant]
     Indication: HYPERTENSION
     Route: 050
     Dates: start: 201211
  14. ATARAX [Concomitant]
     Indication: NERVOUSNESS
     Route: 050
     Dates: start: 1993
  15. LORATAB [Concomitant]
     Route: 050
     Dates: start: 2003
  16. MEGACE [Concomitant]
     Indication: INCREASED APPETITE
     Route: 048
     Dates: start: 20130330, end: 20130414
  17. MEGACE [Concomitant]
     Indication: INCREASED APPETITE
     Route: 048
     Dates: start: 20130430, end: 20130514
  18. MARINOL [Concomitant]
     Indication: INCREASED APPETITE
     Route: 048
     Dates: start: 20130415, end: 20130429
  19. MARINOL [Concomitant]
     Indication: INCREASED APPETITE
     Route: 048
     Dates: start: 20130515

REACTIONS (8)
  - Syncope [Recovering/Resolving]
  - Gastric ulcer haemorrhage [Recovered/Resolved]
  - Haemoglobin decreased [Recovered/Resolved]
  - Respiratory rate increased [Recovering/Resolving]
  - Weight decreased [Unknown]
  - Decreased appetite [Not Recovered/Not Resolved]
  - Burning sensation [Unknown]
  - Drug effect decreased [Unknown]
